FAERS Safety Report 7148042-X (Version None)
Quarter: 2010Q4

REPORT INFORMATION
  Report Type: 
  Country: None (occurrence: None)
  Receive Date: 20101209
  Receipt Date: 20101206
  Transmission Date: 20110411
  Serious: Yes (Death)
  Sender: FDA-Public Use
  Company Number: US-JNJFOC-20101203206

PATIENT
  Sex: Male
  Weight: 63.96 kg

DRUGS (1)
  1. FENTANYL-100 [Suspect]
     Indication: CANCER PAIN
     Dosage: 50UG/HR PLUS 100 UG/HR
     Route: 062

REACTIONS (1)
  - RESPIRATORY FAILURE [None]
